FAERS Safety Report 21843596 (Version 2)
Quarter: 2023Q1

REPORT INFORMATION
  Report Type: Spontaneous
  Country: US (occurrence: US)
  Receive Date: 20230110
  Receipt Date: 20230118
  Transmission Date: 20230417
  Serious: No
  Sender: FDA-Public Use
  Company Number: US-PFIZER INC-PV202300004009

PATIENT
  Age: 75 Year
  Sex: Male

DRUGS (1)
  1. EUCRISA [Suspect]
     Active Substance: CRISABOROLE
     Dosage: UNK (60G TUBE)

REACTIONS (3)
  - Memory impairment [Unknown]
  - Psoriasis [Unknown]
  - Eczema [Unknown]
